FAERS Safety Report 6468880-6 (Version None)
Quarter: 2009Q4

REPORT INFORMATION
  Report Type: 
  Country: None (occurrence: None)
  Receive Date: 20091203
  Receipt Date: 20080811
  Transmission Date: 20100525
  Serious: Yes (Death, Hospitalization, Congenital Anomaly, Other)
  Sender: FDA-Public Use
  Company Number: GB-ELI_LILLY_AND_COMPANY-GB200612003914

PATIENT
  Sex: Female
  Weight: 3.615 kg

DRUGS (3)
  1. FLUOXETINE [Suspect]
     Indication: ANXIETY
     Dosage: 20 MG, UNK
     Route: 064
     Dates: start: 20060914
  2. SERTRALINE HYDROCHLORIDE [Concomitant]
     Indication: ANXIETY
     Dosage: 50 MG, DAILY (1/D)
     Route: 064
     Dates: start: 20060323, end: 20060101
  3. SERTRALINE HYDROCHLORIDE [Concomitant]
     Dosage: 100 MG, DAILY (1/D)
     Route: 064
     Dates: start: 20060101, end: 20060914

REACTIONS (4)
  - CONGENITAL BRAIN DAMAGE [None]
  - DRUG EXPOSURE DURING PREGNANCY [None]
  - ENCEPHALITIS [None]
  - NEONATAL ASPHYXIA [None]
